FAERS Safety Report 17502386 (Version 1)
Quarter: 2020Q1

REPORT INFORMATION
  Report Type: Spontaneous
  Country: GB (occurrence: GB)
  Receive Date: 20200305
  Receipt Date: 20200305
  Transmission Date: 20200409
  Serious: Yes (Other)
  Sender: FDA-Public Use
  Company Number: GB-HIKMA PHARMACEUTICALS USA INC.-GB-H14001-20-50685

PATIENT
  Age: 9 Year
  Sex: Male
  Weight: 34.5 kg

DRUGS (5)
  1. METHYLPREDNISOLONE. [Suspect]
     Active Substance: METHYLPREDNISOLONE
     Indication: PROPHYLAXIS AGAINST TRANSPLANT REJECTION
     Dosage: ()
     Route: 065
     Dates: start: 20200130, end: 20200130
  2. ANTITHYMOCYTE IMMUNOGLOBULIN [Suspect]
     Active Substance: THYMOCYTE IMMUNE GLOBULIN NOS
     Indication: PROPHYLAXIS AGAINST TRANSPLANT REJECTION
     Dosage: ()
     Route: 042
     Dates: start: 20200130, end: 20200130
  3. AZATHIOPRINE. [Concomitant]
     Active Substance: AZATHIOPRINE
     Indication: AUTOIMMUNE HEPATITIS
     Dosage: ()
     Route: 065
  4. URSODEOXYCHOLIC ACID [Concomitant]
     Active Substance: URSODIOL
     Indication: AUTOIMMUNE HEPATITIS
     Dosage: ()
     Route: 065
  5. PREDNISOLONE. [Concomitant]
     Active Substance: PREDNISOLONE
     Indication: AUTOIMMUNE HEPATITIS
     Dosage: ()
     Route: 065

REACTIONS (7)
  - Lymphopenia [Unknown]
  - Pyrexia [Unknown]
  - Jaundice [Unknown]
  - Thrombocytopenia [Unknown]
  - Haemolysis [Recovering/Resolving]
  - Polychromasia [Unknown]
  - Haemoglobinuria [Unknown]

NARRATIVE: CASE EVENT DATE: 20200130
